FAERS Safety Report 11127665 (Version 1)
Quarter: 2015Q2

REPORT INFORMATION
  Report Type: Spontaneous
  Country: US (occurrence: US)
  Receive Date: 20150521
  Receipt Date: 20150521
  Transmission Date: 20150821
  Serious: No
  Sender: FDA-Public Use
  Company Number: US-TEVA-559647USA

PATIENT
  Sex: Female

DRUGS (1)
  1. MIMVEY [Suspect]
     Active Substance: ESTRADIOL\NORETHINDRONE ACETATE
     Dosage: TWICE A WEEK
     Route: 065

REACTIONS (3)
  - Night sweats [Unknown]
  - Hot flush [Unknown]
  - Adverse event [Unknown]
